FAERS Safety Report 9159854 (Version 1)
Quarter: 2013Q1

REPORT INFORMATION
  Report Type: Spontaneous
  Country: SE (occurrence: None)
  Receive Date: 20130220
  Receipt Date: 20130220
  Transmission Date: 20140127
  Serious: Yes (Hospitalization)
  Sender: FDA-Public Use
  Company Number: 2013-000423

PATIENT
  Age: 85 Year
  Sex: Male

DRUGS (14)
  1. RISEDRONATE SODIUM [Suspect]
     Indication: OSTEOPOROSIS
     Route: 048
  2. TRADIL (DEXIBUPROFEN) [Concomitant]
  3. CIALIS (TADALAFIL) [Concomitant]
  4. KALCIPOS-D (CALCIUM CARBONATE, COLECALCIFEROL) [Concomitant]
  5. ATROVENT (IPRATROPIUM BROMIDE) [Concomitant]
  6. AVAMYS (FLUTICASONE FUROATE) [Concomitant]
  7. SEREVENT (SALMETEROL XINAFOATE) [Concomitant]
  8. CITODON/00116401/(CODEINE PHOSPHATE, PARACETAMOL) [Concomitant]
  9. BECOTIDE (BECLOMETASONE DIPROPIONATE) [Concomitant]
  10. ORUDIS (KETOPROFEN) [Concomitant]
  11. PREDNISOLONE (PREDNISOLONE) [Concomitant]
  12. DICLOFENAC (DICLOFENAC) [Concomitant]
  13. FLUNITRAZEPAM (FLUNITRAZEPAM) [Concomitant]
  14. TRADOLAN (TRAMADOL HYDROCHLORIDE) [Concomitant]

REACTIONS (4)
  - Balance disorder [None]
  - Dizziness [None]
  - Loss of control of legs [None]
  - Ventricular tachycardia [None]
